FAERS Safety Report 5524594-8 (Version None)
Quarter: 2007Q4

REPORT INFORMATION
  Report Type: 
  Country: None (occurrence: None)
  Receive Date: 20071123
  Receipt Date: 20071116
  Transmission Date: 20080405
  Serious: Yes (Other)
  Sender: FDA-Public Use
  Company Number: US-BAYER-200713786BCC

PATIENT
  Sex: Female

DRUGS (1)
  1. PHILLIPS CHERRY MILK OF MAGNESIA [Suspect]
     Indication: CONSTIPATION
     Route: 048
     Dates: start: 20071116

REACTIONS (1)
  - HAEMATOCHEZIA [None]
